FAERS Safety Report 17255799 (Version 1)
Quarter: 2020Q1

REPORT INFORMATION
  Report Type: Spontaneous
  Country: US (occurrence: US)
  Receive Date: 20200110
  Receipt Date: 20200110
  Transmission Date: 20200409
  Serious: Yes (Hospitalization)
  Sender: FDA-Public Use
  Company Number: US-EMCURE PHARMACEUTICALS LTD-2019-EPL-1269

PATIENT
  Age: 23 Year
  Sex: Male
  Weight: 103 kg

DRUGS (4)
  1. PIPERACILIN/TAZOBACTAM [Concomitant]
     Active Substance: PIPERACILLIN SODIUM\TAZOBACTAM SODIUM
     Indication: ANTIBIOTIC THERAPY
  2. VANCOMYCIN HYDROCHLORIDE. [Suspect]
     Active Substance: VANCOMYCIN HYDROCHLORIDE
     Indication: ANTIBIOTIC THERAPY
     Dosage: 2000 MILLIGRAM, PER HOSPITAL PROTOCOL OF USING VAN DOSES IN 1000 MG ALIQUOTS (DOSING SCHEME WAS OF 2
     Route: 042
  3. VANCOMYCIN HYDROCHLORIDE. [Suspect]
     Active Substance: VANCOMYCIN HYDROCHLORIDE
     Indication: VASCULAR DEVICE INFECTION
     Dosage: 50 MG/KG IN 24 H (1G, FOLLOWED BY 2G AND THEN ANOTHER 2G 8H LATER, TOTAL 5G IN 24H)
     Route: 042
  4. PIPERACILIN/TAZOBACTAM [Concomitant]
     Active Substance: PIPERACILLIN SODIUM\TAZOBACTAM SODIUM
     Indication: VASCULAR DEVICE INFECTION
     Route: 042

REACTIONS (2)
  - Renal tubular necrosis [Recovering/Resolving]
  - Toxicity to various agents [Recovering/Resolving]
